FAERS Safety Report 8019770-9 (Version None)
Quarter: 2012Q1

REPORT INFORMATION
  Report Type: 
  Country: None (occurrence: None)
  Receive Date: 20120103
  Receipt Date: 20111222
  Transmission Date: 20120608
  Serious: Yes (Hospitalization)
  Sender: FDA-Public Use
  Company Number: GB-GLAXOSMITHKLINE-B0772099A

PATIENT
  Sex: Male
  Weight: 68 kg

DRUGS (5)
  1. DOXORUBICIN HCL [Suspect]
     Indication: RICHTER'S SYNDROME
     Dosage: 46MG CYCLIC
     Route: 042
     Dates: start: 20111011
  2. VINCRISTINE [Suspect]
     Indication: RICHTER'S SYNDROME
     Dosage: 1MG CYCLIC
     Route: 042
     Dates: start: 20111011
  3. CYCLOPHOSPHAMIDE [Suspect]
     Indication: RICHTER'S SYNDROME
     Dosage: 700MG CYCLIC
     Route: 042
     Dates: start: 20111011
  4. OFATUMUMAB [Suspect]
     Indication: RICHTER'S SYNDROME
     Dosage: 300MG CYCLIC
     Route: 042
     Dates: start: 20111011
  5. PREDNISOLONE [Suspect]
     Indication: RICHTER'S SYNDROME
     Dosage: 75MG CYCLIC
     Route: 048
     Dates: start: 20111011

REACTIONS (2)
  - LOWER RESPIRATORY TRACT INFECTION [None]
  - CONFUSIONAL STATE [None]
